FAERS Safety Report 5601459-4 (Version None)
Quarter: 2008Q1

REPORT INFORMATION
  Report Type: 
  Country: None (occurrence: None)
  Receive Date: 20080124
  Receipt Date: 20080121
  Transmission Date: 20080703
  Serious: Yes (Hospitalization)
  Sender: FDA-Public Use
  Company Number: US-ASTRAZENECA-2008AC00256

PATIENT
  Age: 71 Year
  Sex: Male

DRUGS (4)
  1. IRESSA [Suspect]
     Indication: PROSTATE CANCER METASTATIC
     Route: 048
  2. FUROSEMIDE [Concomitant]
  3. LOSARTAN POTASSIUM [Concomitant]
  4. CALCITRIOL [Concomitant]

REACTIONS (2)
  - LIVEDO RETICULARIS [None]
  - PURPURA [None]
